FAERS Safety Report 5767474-5 (Version None)
Quarter: 2008Q2

REPORT INFORMATION
  Report Type: 
  Country: None (occurrence: None)
  Receive Date: 20080611
  Receipt Date: 20080611
  Transmission Date: 20081010
  Serious: Yes (Other)
  Sender: FDA-Public Use
  Company Number: None

PATIENT
  Age: 67 Year
  Sex: Male
  Weight: 75.2971 kg

DRUGS (1)
  1. CIPROFLOXACIN [Suspect]
     Indication: DIVERTICULUM
     Dosage: 1 TABLET 1 OTIC
     Dates: start: 20080609, end: 20080609

REACTIONS (4)
  - DYSPHAGIA [None]
  - LACRIMATION INCREASED [None]
  - PAIN [None]
  - PRURITUS GENERALISED [None]
